FAERS Safety Report 11145792 (Version 2)
Quarter: 2016Q4

REPORT INFORMATION
  Report Type: Spontaneous
  Country: US (occurrence: US)
  Receive Date: 20150528
  Receipt Date: 20161002
  Transmission Date: 20170206
  Serious: No
  Sender: FDA-Public Use
  Company Number: US-ASTRAZENECA-2013SE69594

PATIENT
  Age: 831 Month
  Sex: Male
  Weight: 88.5 kg

DRUGS (15)
  1. FOLIC ACID. [Concomitant]
     Active Substance: FOLIC ACID
     Indication: ILL-DEFINED DISORDER
  2. GLIMIPERIDE [Concomitant]
     Active Substance: GLIMEPIRIDE
     Indication: ADJUVANT THERAPY
     Dosage: 2 MG, TWO TIMES A DAY. ONSET 6 YEARS
  3. WARFARIN [Concomitant]
     Active Substance: WARFARIN
     Dosage: HCP INCREASES TO 2, DAILY DEPENDING ON HIS VITAMIN K LEVELS.
  4. WARFARIN [Concomitant]
     Active Substance: WARFARIN
  5. VITAMIN D3 [Concomitant]
     Active Substance: CHOLECALCIFEROL
     Indication: ILL-DEFINED DISORDER
  6. PROBIOTICS [Concomitant]
     Active Substance: PROBIOTICS NOS
     Indication: ILL-DEFINED DISORDER
  7. SIMVASTATIN. [Concomitant]
     Active Substance: SIMVASTATIN
     Indication: BLOOD CHOLESTEROL ABNORMAL
  8. BYDUREON [Suspect]
     Active Substance: EXENATIDE
     Indication: TYPE 2 DIABETES MELLITUS
     Route: 058
     Dates: start: 2014
  9. DIGOXIN. [Concomitant]
     Active Substance: DIGOXIN
     Indication: ATRIAL FIBRILLATION
     Dates: start: 201001
  10. TAMSULOSIN [Concomitant]
     Active Substance: TAMSULOSIN
     Indication: RENAL DISORDER
     Dosage: 0.4 MG, 1 EVERY NIGHT, ONSET 5 TO 6 YEARS
  11. BYDUREON [Suspect]
     Active Substance: EXENATIDE
     Indication: TYPE 2 DIABETES MELLITUS
     Route: 058
     Dates: start: 2013
  12. GLUCOPHAGE [Concomitant]
     Active Substance: METFORMIN HYDROCHLORIDE
     Indication: DIABETES MELLITUS
  13. GLUCOPHAGE [Concomitant]
     Active Substance: METFORMIN HYDROCHLORIDE
     Indication: DIABETES MELLITUS
     Dosage: 500 MG, 2 TIMES A DAY, ONSET 18 YEARS
  14. CARVEDILOL. [Concomitant]
     Active Substance: CARVEDILOL
     Indication: ATRIAL FIBRILLATION
     Dosage: 2 IN THE A.M. 1/2 IN THE AFTERNOON AND 2 AT BEDTIME
     Dates: start: 2010
  15. LEVOTHYROXINE. [Concomitant]
     Active Substance: LEVOTHYROXINE
     Indication: THYROID DISORDER
     Dosage: 50 MCG, 1 DAILY, ONSET 15 YEARS

REACTIONS (4)
  - Product quality issue [Unknown]
  - Injection site extravasation [Unknown]
  - Injection site swelling [Unknown]
  - Underdose [Unknown]

NARRATIVE: CASE EVENT DATE: 201504
